FAERS Safety Report 7423478-8 (Version None)
Quarter: 2011Q2

REPORT INFORMATION
  Report Type: 
  Country: None (occurrence: None)
  Receive Date: 20110419
  Receipt Date: 20110404
  Transmission Date: 20111010
  Serious: Yes (Life-Threatening)
  Sender: FDA-Public Use
  Company Number: DE-ROCHE-769219

PATIENT
  Age: 57 Year
  Sex: Male
  Weight: 93 kg

DRUGS (5)
  1. TRETINOIN [Suspect]
     Dosage: FORM: SOLUTION
     Route: 042
  2. CYTARABINE [Suspect]
     Route: 042
     Dates: start: 20110302, end: 20110308
  3. ETOPOSIDE [Suspect]
     Route: 042
     Dates: start: 20110302, end: 20110304
  4. IDARUBICIN HCL [Suspect]
     Dosage: SOLUTION FOR INJECTION
     Route: 042
     Dates: start: 20110301, end: 20110304
  5. GEMTUZUMAB OZOGAMICIN [Suspect]
     Route: 042
     Dates: start: 20110302, end: 20110302

REACTIONS (1)
  - SEPSIS [None]
